FAERS Safety Report 8470288 (Version 2)
Quarter: 2013Q3

REPORT INFORMATION
  Report Type: Report from Study
  Country: SG (occurrence: SG)
  Receive Date: 20120321
  Receipt Date: 20130903
  Transmission Date: 20140515
  Serious: Yes (Hospitalization)
  Sender: FDA-Public Use
  Company Number: PHHO2012SG002987

PATIENT
  Age: 72 Year
  Sex: Female
  Weight: 87.2 kg

DRUGS (2)
  1. AMLODIPINE [Suspect]
     Indication: HYPERTENSION
     Dosage: 2.5 MG, AM
     Route: 048
     Dates: start: 20081031, end: 20120214
  2. ALISKIREN [Suspect]
     Indication: CARDIOVASCULAR DISORDER
     Route: 048
     Dates: start: 20081212, end: 20111222

REACTIONS (2)
  - Local swelling [Recovering/Resolving]
  - Joint swelling [Recovering/Resolving]
